FAERS Safety Report 9750837 (Version 1)
Quarter: 2013Q4

REPORT INFORMATION
  Report Type: Spontaneous
  Country: US (occurrence: US)
  Receive Date: 20131212
  Receipt Date: 20131212
  Transmission Date: 20140711
  Serious: No
  Sender: FDA-Public Use
  Company Number: US-BIOGENIDEC-2013BI101600

PATIENT
  Sex: Male

DRUGS (7)
  1. TECFIDERA [Suspect]
     Indication: MULTIPLE SCLEROSIS
     Route: 048
     Dates: start: 20130904
  2. ASPIRIN [Concomitant]
  3. BACLOFEN [Concomitant]
  4. CIALIS [Concomitant]
  5. GABAPENTIN [Concomitant]
  6. LEVETIRACETAM [Concomitant]
  7. LISINOPRIL [Concomitant]

REACTIONS (1)
  - Fatigue [Unknown]
